FAERS Safety Report 11226352 (Version 1)
Quarter: 2015Q2

REPORT INFORMATION
  Report Type: Report from Study
  Country: US (occurrence: US)
  Receive Date: 20150629
  Receipt Date: 20150629
  Transmission Date: 20150821
  Serious: Yes (Hospitalization, Other)
  Sender: FDA-Public Use
  Company Number: US-GILEAD-2015-0159958

PATIENT
  Sex: Male

DRUGS (2)
  1. LEDIPASVIR/SOFOSBUVIR [Suspect]
     Active Substance: LEDIPASVIR\SOFOSBUVIR
     Indication: HEPATITIS C
     Dosage: 1 DF, QD
     Route: 048
     Dates: start: 20150403
  2. RIBAVIRIN. [Suspect]
     Active Substance: RIBAVIRIN
     Indication: HEPATITIS C
     Dosage: 1200 MG, QD
     Route: 048
     Dates: start: 20150403, end: 20150512

REACTIONS (19)
  - Loss of consciousness [Recovering/Resolving]
  - Ascites [Recovering/Resolving]
  - Muscle spasms [Recovering/Resolving]
  - Muscle disorder [Recovering/Resolving]
  - Anaemia [Recovering/Resolving]
  - Sleep disorder [Recovering/Resolving]
  - Agitation [Recovering/Resolving]
  - Fatigue [Recovering/Resolving]
  - Myalgia [Recovering/Resolving]
  - Tremor [Recovering/Resolving]
  - Hypersomnia [Recovering/Resolving]
  - Lethargy [Recovering/Resolving]
  - Memory impairment [Recovering/Resolving]
  - Headache [Recovering/Resolving]
  - Hepatic encephalopathy [Recovering/Resolving]
  - Asterixis [Recovering/Resolving]
  - Feeling abnormal [Recovering/Resolving]
  - Change in sustained attention [Recovering/Resolving]
  - Muscular weakness [Recovering/Resolving]

NARRATIVE: CASE EVENT DATE: 20150506
